FAERS Safety Report 12852425 (Version 1)
Quarter: 2016Q4

REPORT INFORMATION
  Report Type: Spontaneous
  Country: RU (occurrence: RU)
  Receive Date: 20161017
  Receipt Date: 20161017
  Transmission Date: 20170207
  Serious: Yes (Hospitalization, Other)
  Sender: FDA-Public Use
  Company Number: RU-ASTRAZENECA-2016SF08062

PATIENT
  Age: 67 Year
  Sex: Male
  Weight: 68 kg

DRUGS (3)
  1. ATORIS [Concomitant]
     Active Substance: ATORVASTATIN CALCIUM
  2. BRILINTA [Suspect]
     Active Substance: TICAGRELOR
     Indication: ACUTE CORONARY SYNDROME
     Dosage: 90 MILLIGRAMS TWO TIMES A DAY
     Route: 048
  3. BETALOC ZOK [Concomitant]
     Active Substance: METOPROLOL SUCCINATE

REACTIONS (2)
  - Drug dose omission [Unknown]
  - Vascular stent thrombosis [Recovered/Resolved]

NARRATIVE: CASE EVENT DATE: 20161003
